FAERS Safety Report 5654842-5 (Version None)
Quarter: 2008Q1

REPORT INFORMATION
  Report Type: 
  Country: None (occurrence: None)
  Receive Date: 20080307
  Receipt Date: 20070806
  Transmission Date: 20080703
  Serious: No
  Sender: FDA-Public Use
  Company Number: A0668742A

PATIENT
  Sex: Female

DRUGS (4)
  1. REQUIP [Suspect]
     Indication: PARKINSON'S DISEASE
     Dosage: 3MG THREE TIMES PER DAY
     Route: 048
     Dates: start: 19990101
  2. LEVODOPA [Concomitant]
  3. DOPAMINERGIC AGONIST [Concomitant]
  4. ULTRAM [Concomitant]

REACTIONS (2)
  - GAMBLING [None]
  - OEDEMA PERIPHERAL [None]
